FAERS Safety Report 15946889 (Version 3)
Quarter: 2019Q2

REPORT INFORMATION
  Report Type: Spontaneous
  Country: US (occurrence: US)
  Receive Date: 20190211
  Receipt Date: 20190403
  Transmission Date: 20190711
  Serious: No
  Sender: FDA-Public Use
  Company Number: US-PFIZER INC-2016584865

PATIENT
  Age: 27 Year
  Sex: Female
  Weight: 73.94 kg

DRUGS (24)
  1. RETIN-A [Concomitant]
     Active Substance: TRETINOIN
     Dosage: AS NEEDED (1 APPLICATION TO AFFECTED AREA EXTERNALLY QHS)
     Route: 061
     Dates: start: 20151124
  2. BUDESONIDE. [Concomitant]
     Active Substance: BUDESONIDE
     Dosage: 3X/DAY (1 CAPSULE OPENED INTO FOOD)
  3. ZZZQUIL NIGHTTIME SLEEP-AID [Concomitant]
     Active Substance: DIPHENHYDRAMINE HYDROCHLORIDE
     Dosage: 25 MG, 1X/DAY
     Route: 048
  4. STOOL SOFTENER (DOCUSATE) [Concomitant]
     Active Substance: DOCUSATE
     Dosage: 100 MG, 1 TABLET TID AS NEEDED
  5. LYSINE [Concomitant]
     Active Substance: LYSINE
     Dosage: 500 MG, AS NEEDED
  6. CHILDREN MULTIVITAMINS [Concomitant]
     Dosage: UNK, 1X/DAY
  7. LYRICA [Suspect]
     Active Substance: PREGABALIN
     Indication: NEUROPATHY PERIPHERAL
  8. LYRICA [Suspect]
     Active Substance: PREGABALIN
     Indication: PAIN
  9. AUGMENTIN [Concomitant]
     Active Substance: AMOXICILLIN\CLAVULANATE POTASSIUM
     Dosage: 2X/DAY [AMOXICILLIN SODIUM 875MG/CLAVULANATE POTASSIUM 125MG]
     Route: 048
     Dates: start: 20161209
  10. LYRICA [Suspect]
     Active Substance: PREGABALIN
     Indication: FIBROMYALGIA
     Dosage: 200 MG, THREE TIMES A DAY (1 CAPSULE, THREE TIMES A DAY)
     Route: 048
     Dates: start: 20161209, end: 20180904
  11. NYSTATIN. [Concomitant]
     Active Substance: NYSTATIN
     Dosage: 10 ML, 4X/DAY
     Route: 048
  12. FLONASE [Concomitant]
     Active Substance: FLUTICASONE PROPIONATE
     Dosage: 50MCG/ACT SUSPENSION/ 1 SPRAY IN EACH NOSTRIL NASALLY ONCE A DAY
     Route: 045
  13. CALCITRATE PLUS D [Concomitant]
     Dosage: 500 MG, 1X/DAY
  14. VITAMIN B12 [Concomitant]
     Active Substance: CYANOCOBALAMIN
     Dosage: 500 MG, 1X/DAY
  15. TRAMADOL. [Concomitant]
     Active Substance: TRAMADOL
     Dosage: 1 DF, AS NEEDED (TAKE 1 TABLET BY MOUTH FOUR TIMES DAILY)
     Route: 048
  16. SAVELLA [Concomitant]
     Active Substance: MILNACIPRAN HYDROCHLORIDE
     Dosage: 50 MG, 1X/DAY
  17. ZINC SULFATE [Concomitant]
     Active Substance: ZINC SULFATE\ZINC SULFATE ANHYDROUS
     Dosage: 50 MG, 2X/DAY
     Route: 048
  18. BENTYL [Concomitant]
     Active Substance: DICYCLOMINE HYDROCHLORIDE
     Dosage: 20 MG, 4X/DAY
     Route: 048
     Dates: start: 20161102
  19. CYMBALTA [Concomitant]
     Active Substance: DULOXETINE HYDROCHLORIDE
     Dosage: 60 MG, 1X/DAY (DELAYED RELEASE PARTICLES)
     Route: 048
     Dates: start: 20160908
  20. OMEPRAZOLE. [Concomitant]
     Active Substance: OMEPRAZOLE
     Dosage: 40 MG, 1X/DAY
     Route: 048
     Dates: start: 20150224
  21. FLEXERIL [Concomitant]
     Active Substance: CYCLOBENZAPRINE HYDROCHLORIDE
     Dosage: 10 MG ORAL, 1 TABLET TID/ 30 DAYS AS NEEDED
     Route: 048
  22. TYLENOL [Concomitant]
     Active Substance: ACETAMINOPHEN
     Dosage: 2 DF, 1X/DAY, (2 TABLET ONCE A DAY)
  23. MICROGESTIN [Concomitant]
     Active Substance: ETHINYL ESTRADIOL\NORETHINDRONE ACETATE
     Dosage: 1 DF, 1X/DAY, [ETHINYLESTRADIOL 30 MCG/NORETHISTERONE ACETATE 1.5 MG]
     Route: 048
     Dates: start: 20160316
  24. CLARITIN [Concomitant]
     Active Substance: LORATADINE
     Dosage: 10 MG, 1X/DAY
     Route: 048

REACTIONS (3)
  - Product use issue [Unknown]
  - Withdrawal syndrome [Not Recovered/Not Resolved]
  - Pain [Unknown]

NARRATIVE: CASE EVENT DATE: 20161209
